FAERS Safety Report 11219678 (Version 1)
Quarter: 2015Q2

REPORT INFORMATION
  Report Type: Spontaneous
  Country: US (occurrence: None)
  Receive Date: 20150624
  Receipt Date: 20150624
  Transmission Date: 20150821
  Serious: No
  Sender: FDA-Public Use
  Company Number: None

PATIENT
  Sex: Female

DRUGS (1)
  1. SIMVASTATIN. [Suspect]
     Active Substance: SIMVASTATIN
     Dosage: 20 MG 1 PILL BEDTIME MOUTH
     Route: 048

REACTIONS (4)
  - Rhinorrhoea [None]
  - Sneezing [None]
  - Product quality issue [None]
  - Product substitution issue [None]
